FAERS Safety Report 17994898 (Version 3)
Quarter: 2021Q1

REPORT INFORMATION
  Report Type: Report from Study
  Country: IE (occurrence: IE)
  Receive Date: 20200708
  Receipt Date: 20210317
  Transmission Date: 20210419
  Serious: Yes (Other)
  Sender: FDA-Public Use
  Company Number: IE-EMD SERONO-9153329

PATIENT
  Age: 38 Year
  Sex: Female

DRUGS (3)
  1. MAVENCLAD [Suspect]
     Active Substance: CLADRIBINE
     Dosage: FIRST YEAR FIFTH WEEK THERAPY: 2 DOSAGE FORMS ON DAY 1 AND 1 DOSAGE FORM ON DAYS 2 TO 5.
     Route: 048
     Dates: start: 20200203, end: 2020
  2. MAVENCLAD [Suspect]
     Active Substance: CLADRIBINE
     Indication: RELAPSING-REMITTING MULTIPLE SCLEROSIS
     Dosage: FIRST YEAR FIRST WEEK THERAPY: 2 DOSAGE FORMS ON DAY 1 AND 1 DOSAGE FORM ON DAYS 2 TO 5.
     Route: 048
     Dates: start: 20200106, end: 2020
  3. MAVENCLAD [Suspect]
     Active Substance: CLADRIBINE
     Dosage: SECOND YEAR FIRST WEEK THERAPY
     Route: 048
     Dates: start: 20210308

REACTIONS (2)
  - Platelet count decreased [Recovering/Resolving]
  - Lymphocyte count decreased [Not Recovered/Not Resolved]

NARRATIVE: CASE EVENT DATE: 202003
